FAERS Safety Report 4407251-0 (Version None)
Quarter: 2004Q3

REPORT INFORMATION
  Report Type: 
  Country: None (occurrence: None)
  Receive Date: 20040721
  Receipt Date: 20040625
  Transmission Date: 20050211
  Serious: Yes (Other)
  Sender: FDA-Public Use
  Company Number: A03200402303

PATIENT
  Age: 80 Year
  Sex: Male

DRUGS (3)
  1. UROXATRAL [Suspect]
     Dosage: ORAL
     Route: 048
  2. DILTIAZAEM HYDROCHLORIDE [Concomitant]
  3. ATENOLOL [Concomitant]

REACTIONS (4)
  - FALL [None]
  - HEAD INJURY [None]
  - SUBARACHNOID HAEMORRHAGE [None]
  - SYNCOPE [None]
